FAERS Safety Report 21245903 (Version 1)
Quarter: 2022Q3

REPORT INFORMATION
  Report Type: Report from Study
  Country: US (occurrence: None)
  Receive Date: 20220824
  Receipt Date: 20220824
  Transmission Date: 20221027
  Serious: Yes (Death, Other)
  Sender: FDA-Public Use
  Company Number: US-ROCHE-2933837

PATIENT
  Age: 63 Year
  Sex: Male
  Weight: 117.3 kg

DRUGS (1)
  1. DORNASE ALFA [Suspect]
     Active Substance: DORNASE ALFA
     Indication: COVID-19
     Dosage: VIA VENTILATORY
     Route: 045
     Dates: start: 20210909, end: 20211002

REACTIONS (5)
  - Respiratory failure [Fatal]
  - Renal failure [Fatal]
  - Septic shock [Fatal]
  - Cardiac arrest [Fatal]
  - Acute kidney injury [Unknown]

NARRATIVE: CASE EVENT DATE: 20210929
